FAERS Safety Report 17148965 (Version 1)
Quarter: 2019Q4

REPORT INFORMATION
  Report Type: Spontaneous
  Country: FR (occurrence: FR)
  Receive Date: 20191213
  Receipt Date: 20191213
  Transmission Date: 20200122
  Serious: Yes (Death)
  Sender: FDA-Public Use
  Company Number: FR-SUN PHARMACEUTICAL INDUSTRIES LTD-2019RR-230751

PATIENT
  Age: 22 Year
  Sex: Female

DRUGS (2)
  1. CITALOPRAM [Suspect]
     Active Substance: CITALOPRAM HYDROBROMIDE
     Indication: INTENTIONAL PRODUCT MISUSE
     Dosage: ()
     Route: 065
  2. TRAMADOL. [Suspect]
     Active Substance: TRAMADOL
     Indication: INTENTIONAL PRODUCT MISUSE
     Dosage: ()
     Route: 065

REACTIONS (2)
  - Cardiac dysfunction [Fatal]
  - Drug abuse [Fatal]
